FAERS Safety Report 8130318-0 (Version None)
Quarter: 2012Q1

REPORT INFORMATION
  Report Type: 
  Country: None (occurrence: None)
  Receive Date: 20120210
  Receipt Date: 20120206
  Transmission Date: 20120608
  Serious: Yes (Hospitalization)
  Sender: FDA-Public Use
  Company Number: PHHY2012IT009998

PATIENT
  Sex: Male

DRUGS (1)
  1. CARBAMAZEPINE [Suspect]
     Dosage: 200 MG, DAILY
     Route: 048
     Dates: start: 20101225, end: 20111224

REACTIONS (3)
  - CONFUSIONAL STATE [None]
  - HEART RATE INCREASED [None]
  - BLOOD PRESSURE INCREASED [None]
